FAERS Safety Report 5514303-0 (Version None)
Quarter: 2007Q4

REPORT INFORMATION
  Report Type: 
  Country: None (occurrence: None)
  Receive Date: 20071113
  Receipt Date: 20070405
  Transmission Date: 20080405
  Serious: No
  Sender: FDA-Public Use
  Company Number: A0646099A

PATIENT
  Age: 47 Year
  Sex: Male

DRUGS (8)
  1. COREG [Suspect]
     Indication: LEFT VENTRICULAR DYSFUNCTION
     Dosage: 3.125MG TWICE PER DAY
     Route: 048
  2. LASIX [Concomitant]
  3. LISINOPRIL [Concomitant]
  4. LIPITOR [Concomitant]
  5. TRICOR [Concomitant]
  6. ALDACTONE [Concomitant]
  7. WARFARIN SODIUM [Concomitant]
  8. POTASSIUM SUPPLEMENT [Concomitant]

REACTIONS (1)
  - DRY EYE [None]
